FAERS Safety Report 6759783-8 (Version None)
Quarter: 2010Q2

REPORT INFORMATION
  Report Type: 
  Country: None (occurrence: None)
  Receive Date: 20100604
  Receipt Date: 20100520
  Transmission Date: 20101027
  Serious: Yes (Hospitalization)
  Sender: FDA-Public Use
  Company Number: 2009003641

PATIENT
  Age: 61 Year
  Sex: Male

DRUGS (7)
  1. ERLOTONIB/PLACEBO (ERLOTINIB) (TABLET) (ERLOTINIB) [Suspect]
     Indication: NON-SMALL CELL LUNG CANCER
     Dosage: QD, ORAL
     Route: 048
     Dates: start: 20091014
  2. GEMCITABINE [Suspect]
     Indication: NON-SMALL CELL LUNG CANCER
     Dosage: 2312 MG, QD, INTRAVENOUS
     Route: 042
     Dates: start: 20090930
  3. CARBOPLATIN [Suspect]
     Indication: NON-SMALL CELL LUNG CANCER
     Dosage: 440 MG, QD, INTRAVENOUS
     Route: 042
     Dates: start: 20090829
  4. ATARAX [Concomitant]
  5. METOCLOPRAMIDE (METOCLOPRAMIDE) [Concomitant]
  6. ESOMEPRAZOLE MAGNESIUM [Concomitant]
  7. APPEBON [Concomitant]

REACTIONS (1)
  - ANAEMIA [None]
